FAERS Safety Report 9515959 (Version 1)
Quarter: 2013Q1

REPORT INFORMATION
  Report Type: Spontaneous
  Country: US (occurrence: None)
  Receive Date: 20130305
  Receipt Date: 20130305
  Transmission Date: 20140127
  Serious: No
  Sender: FDA-Public Use
  Company Number: 163-21880-12113252

PATIENT
  Age: 68 Year
  Sex: Male

DRUGS (3)
  1. REVLIMID (LENALIDOMIDE) (10 MILLIGRAM) [Suspect]
     Indication: PLASMA CELL MYELOMA
     Dosage: 6.6667 MG, 14 IN 21 D, PO
     Route: 048
     Dates: start: 201210
  2. ZANTAC (RANITIDINE HYDROCHLORIDE) [Concomitant]
  3. VELCADE (INJECTION FOR INFUSION) [Concomitant]

REACTIONS (5)
  - Dehydration [None]
  - Neuropathy peripheral [None]
  - Fatigue [None]
  - Vomiting [None]
  - Abdominal pain [None]
